FAERS Safety Report 11877266 (Version 7)
Quarter: 2016Q2

REPORT INFORMATION
  Report Type: Report from Study
  Country: US (occurrence: US)
  Receive Date: 20151229
  Receipt Date: 20160525
  Transmission Date: 20160815
  Serious: Yes (Death, Hospitalization)
  Sender: FDA-Public Use
  Company Number: US-ACTELION-A-US2015-127669

PATIENT
  Age: 69 Year
  Sex: Male

DRUGS (8)
  1. MACITENTAN [Suspect]
     Active Substance: MACITENTAN
     Indication: PULMONARY ARTERIAL HYPERTENSION
     Dosage: 10 MG, QD
     Route: 048
     Dates: start: 20150629, end: 20160503
  2. VELETRI [Suspect]
     Active Substance: EPOPROSTENOL
     Indication: PULMONARY ARTERIAL HYPERTENSION
     Dosage: 20 NG/KG, PER MIN
     Route: 042
     Dates: start: 20150714
  3. PREDNISONE. [Concomitant]
     Active Substance: PREDNISONE
  4. VYTORIN [Concomitant]
     Active Substance: EZETIMIBE\SIMVASTATIN
  5. OMEPRAZOLE. [Concomitant]
     Active Substance: OMEPRAZOLE
  6. VENTAVIS [Suspect]
     Active Substance: ILOPROST
     Indication: PULMONARY ARTERIAL HYPERTENSION
     Dosage: UNK
     Route: 055
     Dates: start: 201506, end: 20160503
  7. ALBUTEROL. [Concomitant]
     Active Substance: ALBUTEROL
  8. VIAGRA [Concomitant]
     Active Substance: SILDENAFIL CITRATE

REACTIONS (6)
  - Dyspnoea [Fatal]
  - Fluid retention [Unknown]
  - Pulmonary arterial hypertension [Fatal]
  - Sinusitis [Unknown]
  - Pneumonia [Unknown]
  - Hepatic congestion [Unknown]

NARRATIVE: CASE EVENT DATE: 20160503
